FAERS Safety Report 13100312 (Version 1)
Quarter: 2017Q1

REPORT INFORMATION
  Report Type: Spontaneous
  Country: US (occurrence: US)
  Receive Date: 20170110
  Receipt Date: 20170110
  Transmission Date: 20170428
  Serious: No
  Sender: FDA-Public Use
  Company Number: US-BEH-2017076858

PATIENT
  Sex: Female

DRUGS (1)
  1. STIMATE [Suspect]
     Active Substance: DESMOPRESSIN ACETATE
     Indication: COAGULATION FACTOR DEFICIENCY
     Dosage: 1.5 UNK, PRN
     Route: 045
     Dates: start: 20161024

REACTIONS (2)
  - Contusion [Unknown]
  - Epistaxis [Unknown]
